FAERS Safety Report 14983825 (Version 1)
Quarter: 2018Q2

REPORT INFORMATION
  Report Type: Spontaneous
  Country: US (occurrence: US)
  Receive Date: 20180607
  Receipt Date: 20180607
  Transmission Date: 20180711
  Serious: Yes (Hospitalization)
  Sender: FDA-Public Use
  Company Number: US-JNJFOC-20180604174

PATIENT
  Age: 44 Year
  Sex: Male

DRUGS (1)
  1. INVOKANA [Suspect]
     Active Substance: CANAGLIFLOZIN
     Indication: TYPE 1 DIABETES MELLITUS
     Route: 048
     Dates: start: 20160106

REACTIONS (4)
  - Off label use [Unknown]
  - Diabetic foot infection [Unknown]
  - Toe amputation [Recovering/Resolving]
  - Product use in unapproved indication [Unknown]

NARRATIVE: CASE EVENT DATE: 20160106
